FAERS Safety Report 18847916 (Version 2)
Quarter: 2021Q1

REPORT INFORMATION
  Report Type: Report from Study
  Country: US (occurrence: US)
  Receive Date: 20210204
  Receipt Date: 20210223
  Transmission Date: 20210419
  Serious: Yes (Death, Hospitalization, Other)
  Sender: FDA-Public Use
  Company Number: US-GLAXOSMITHKLINE-US2020AMR118168

PATIENT
  Age: 76 Year
  Sex: Female

DRUGS (8)
  1. NIRAPARIB [Suspect]
     Active Substance: NIRAPARIB
     Indication: OVARIAN CANCER
     Dosage: 200 MG, QD 6PM WITH FOOD
     Route: 065
     Dates: start: 20200616, end: 20200731
  2. NIRAPARIB [Suspect]
     Active Substance: NIRAPARIB
     Dosage: 100 MG, QD
     Route: 065
     Dates: start: 20200821
  3. NIRAPARIB [Suspect]
     Active Substance: NIRAPARIB
     Dosage: 100 MG, QD
  4. NIRAPARIB [Suspect]
     Active Substance: NIRAPARIB
     Dosage: 100 MG, QD
  5. NIRAPARIB [Suspect]
     Active Substance: NIRAPARIB
     Dosage: 100 MG, QD
  6. NIRAPARIB [Suspect]
     Active Substance: NIRAPARIB
     Dosage: 100 MG, QD
     Route: 065
  7. METOPROLOL. [Concomitant]
     Active Substance: METOPROLOL
     Indication: BLOOD PRESSURE MANAGEMENT
     Dosage: UNK
  8. NIRAPARIB [Suspect]
     Active Substance: NIRAPARIB
     Dosage: 100 MG, QD
     Route: 065

REACTIONS (15)
  - Death [Fatal]
  - Poor quality sleep [Recovering/Resolving]
  - Abdominal pain upper [Recovered/Resolved]
  - Haemoglobin decreased [Recovered/Resolved]
  - Off label use [Unknown]
  - Asthenia [Recovering/Resolving]
  - Plasma cell disorder [Unknown]
  - Drug monitoring procedure not performed [Unknown]
  - Decreased appetite [Not Recovered/Not Resolved]
  - Fluid intake reduced [Unknown]
  - Platelet count decreased [Recovered/Resolved]
  - Hospitalisation [Unknown]
  - Insomnia [Unknown]
  - Carbohydrate antigen 125 increased [Not Recovered/Not Resolved]
  - Headache [Recovering/Resolving]

NARRATIVE: CASE EVENT DATE: 20210204
